FAERS Safety Report 18686171 (Version 2)
Quarter: 2021Q1

REPORT INFORMATION
  Report Type: Report from Study
  Country: FR (occurrence: FR)
  Receive Date: 20201231
  Receipt Date: 20210112
  Transmission Date: 20210419
  Serious: Yes (Hospitalization)
  Sender: FDA-Public Use
  Company Number: FR-ROCHE-2739572

PATIENT
  Age: 48 Year
  Sex: Female

DRUGS (6)
  1. CISPLATINE [Suspect]
     Active Substance: CISPLATIN
     Indication: CERVIX CARCINOMA
     Dosage: DATE OF MOST RECENT DOSE OF CISPLATIN PRIOR TO EVENT ONSET: 04/DEC/2020 (60 MG)
     Route: 042
     Dates: start: 20201113
  2. OLANZAPINE. [Concomitant]
     Active Substance: OLANZAPINE
     Dosage: DAY1 TO DAY 3 POST CHEMO
     Route: 048
     Dates: start: 20201127
  3. PREDNISOLONE. [Concomitant]
     Active Substance: PREDNISOLONE
     Dosage: DAY 1 TO DAY 3 POST CHEMO
     Route: 048
     Dates: start: 20201127
  4. EMEND [Concomitant]
     Active Substance: APREPITANT
     Dosage: DAY1 TO DAY2 POST CHEMO.
     Route: 048
  5. PRIMPERAN [Concomitant]
     Active Substance: METOCLOPRAMIDE HYDROCHLORIDE
     Indication: NAUSEA
     Route: 048
     Dates: start: 20201220
  6. ATEZOLIZUMAB. [Suspect]
     Active Substance: ATEZOLIZUMAB
     Indication: CERVIX CARCINOMA
     Dosage: DATE OF MOST RECENT DOSE OF ATEZOLIZUMAB PRIOR TO EVENT ONSET: 11/DEC/2020
     Route: 042
     Dates: start: 20201113

REACTIONS (2)
  - Vomiting [Recovered/Resolved]
  - Weight decreased [Recovered/Resolved]

NARRATIVE: CASE EVENT DATE: 20201214
